FAERS Safety Report 22384866 (Version 2)
Quarter: 2023Q2

REPORT INFORMATION
  Report Type: Spontaneous
  Country: JP (occurrence: JP)
  Receive Date: 20230530
  Receipt Date: 20230626
  Transmission Date: 20230722
  Serious: Yes (Death)
  Sender: FDA-Public Use
  Company Number: JP-asahikaseip-2023-AER-02840

PATIENT
  Age: 91 Year
  Sex: Male
  Weight: 51 kg

DRUGS (8)
  1. RECLAST [Suspect]
     Active Substance: ZOLEDRONIC ACID
     Indication: Osteoporosis
     Dosage: 5 MG, Q12MO
     Route: 041
     Dates: start: 20230517
  2. ELDECALCITOL [Concomitant]
     Active Substance: ELDECALCITOL
     Indication: Osteoporosis
     Dosage: UNK
     Route: 048
  3. ELDECALCITOL [Concomitant]
     Active Substance: ELDECALCITOL
     Dosage: 0.75 UG, QD
     Route: 048
     Dates: start: 20230517
  4. SILODOSIN [Concomitant]
     Active Substance: SILODOSIN
     Indication: Benign prostatic hyperplasia
     Dosage: UNK
     Route: 048
  5. SILODOSIN [Concomitant]
     Active Substance: SILODOSIN
     Dosage: 4 MG, Q12H
     Route: 048
  6. QUETIAPINE [Concomitant]
     Active Substance: QUETIAPINE
     Indication: Schizophreniform disorder
     Dosage: 25 MG, QD (12.5MG ONCE A DAY6.25MG ONCE A DAY)
     Route: 048
     Dates: end: 20230519
  7. ESZOPICLONE [Concomitant]
     Active Substance: ESZOPICLONE
     Indication: Insomnia
     Dosage: 1 MG, QD
     Route: 048
  8. CALONAL [Concomitant]
     Active Substance: ACETAMINOPHEN
     Indication: Analgesic therapy
     Dosage: 500 MG, Q12H
     Route: 048
     Dates: start: 20230509

REACTIONS (3)
  - Pyrexia [Fatal]
  - Malaise [Fatal]
  - Hypoxia [Fatal]

NARRATIVE: CASE EVENT DATE: 20230518
